FAERS Safety Report 17856045 (Version 2)
Quarter: 2020Q4

REPORT INFORMATION
  Report Type: Spontaneous
  Country: CA (occurrence: CA)
  Receive Date: 20200603
  Receipt Date: 20201001
  Transmission Date: 20210113
  Serious: Yes (Hospitalization, Other)
  Sender: FDA-Public Use
  Company Number: CA-BRISTOL-MYERS SQUIBB COMPANY-BMS-2020-042318

PATIENT
  Sex: Female

DRUGS (19)
  1. INFLIXIMAB [Suspect]
     Active Substance: INFLIXIMAB
     Dosage: 3 MILLIGRAM/KILOGRAM
  2. SULFASALAZINE. [Suspect]
     Active Substance: SULFASALAZINE
     Indication: JUVENILE IDIOPATHIC ARTHRITIS
     Dosage: 250 MILLIGRAM
     Route: 048
  3. INFLIXIMAB [Suspect]
     Active Substance: INFLIXIMAB
     Indication: JUVENILE IDIOPATHIC ARTHRITIS
     Dosage: 5 MILLIGRAM, QWK
     Route: 058
  4. ACTEMRA [Suspect]
     Active Substance: TOCILIZUMAB
     Indication: JUVENILE IDIOPATHIC ARTHRITIS
     Dosage: 280 MILLIGRAM, QWK
     Route: 042
  5. HUMIRA [Suspect]
     Active Substance: ADALIMUMAB
     Indication: JUVENILE IDIOPATHIC ARTHRITIS
     Route: 058
  6. ANAKINRA [Suspect]
     Active Substance: ANAKINRA
     Indication: JUVENILE IDIOPATHIC ARTHRITIS
     Dosage: 50 MILLIGRAM, QD
     Route: 058
  7. ENBREL [Suspect]
     Active Substance: ETANERCEPT
     Indication: JUVENILE IDIOPATHIC ARTHRITIS
     Dosage: 12.5 MILLIGRAM (4 EVERY 1 WEEK)
     Route: 058
  8. HYDROXYCHLOROQUINE [Suspect]
     Active Substance: HYDROXYCHLOROQUINE
     Indication: JUVENILE IDIOPATHIC ARTHRITIS
     Dosage: 5 MILLIGRAM/KILOGRAM, QD
     Route: 048
  9. IMMUNE GLOBULIN (IMMUNOGLOBULINS NOS) [Suspect]
     Active Substance: IMMUNE GLOBULIN NOS
     Indication: JUVENILE IDIOPATHIC ARTHRITIS
     Dosage: 70 GRAM
     Route: 042
  10. METHOTREXATE. [Suspect]
     Active Substance: METHOTREXATE
     Indication: JUVENILE IDIOPATHIC ARTHRITIS
     Dosage: 15 MILLIGRAM/KILOGRAM, QWK
     Route: 058
  11. PREDNISONE. [Suspect]
     Active Substance: PREDNISONE
     Indication: JUVENILE IDIOPATHIC ARTHRITIS
     Dosage: 3 MILLIGRAM, BID
     Route: 048
  12. ADALIMUMAB [Suspect]
     Active Substance: ADALIMUMAB
     Indication: JUVENILE IDIOPATHIC ARTHRITIS
     Route: 058
  13. PREDNISONE. [Suspect]
     Active Substance: PREDNISONE
     Dosage: 5 MILLIGRAM, BID
     Route: 048
  14. ORENCIA [Suspect]
     Active Substance: ABATACEPT
     Indication: JUVENILE IDIOPATHIC ARTHRITIS
     Dosage: 250 MILLIGRAM (1 EVERY 1 MONTH)
     Route: 042
  15. NAPROXEN. [Suspect]
     Active Substance: NAPROXEN
     Indication: JUVENILE IDIOPATHIC ARTHRITIS
  16. TRIAMCINOLONE HEXACETONIDE [Suspect]
     Active Substance: TRIAMCINOLONE HEXACETONIDE
     Indication: JUVENILE IDIOPATHIC ARTHRITIS
     Route: 065
  17. ENBREL [Suspect]
     Active Substance: ETANERCEPT
     Dosage: 25 UNK
     Route: 058
  18. ACTEMRA [Suspect]
     Active Substance: TOCILIZUMAB
     Dosage: 280 MILLIGRAM, Q2WK (UNKNOWN DOSAGE FORM)
     Route: 042
  19. TRIAMCINOLONE [Suspect]
     Active Substance: TRIAMCINOLONE
     Indication: JUVENILE IDIOPATHIC ARTHRITIS
     Dosage: UNK
     Route: 014

REACTIONS (24)
  - Obesity [Unknown]
  - Drug ineffective [Unknown]
  - Septic shock [Unknown]
  - Synovitis [Unknown]
  - Drug specific antibody [Unknown]
  - Psoriasis [Unknown]
  - Body height below normal [Unknown]
  - Polyarthritis [Unknown]
  - Red blood cell sedimentation rate increased [Unknown]
  - Adrenal insufficiency [Unknown]
  - Antibody test positive [Unknown]
  - Drug intolerance [Unknown]
  - Arthropathy [Unknown]
  - Condition aggravated [Unknown]
  - Diarrhoea [Unknown]
  - Dizziness [Unknown]
  - Human antichimeric antibody positive [Unknown]
  - Vomiting [Unknown]
  - Arthritis [Unknown]
  - C-reactive protein increased [Unknown]
  - Loss of personal independence in daily activities [Unknown]
  - Mobility decreased [Unknown]
  - Bone density decreased [Unknown]
  - Nausea [Unknown]
